FAERS Safety Report 18727261 (Version 1)
Quarter: 2021Q1

REPORT INFORMATION
  Report Type: Spontaneous
  Country: US (occurrence: US)
  Receive Date: 20210111
  Receipt Date: 20210111
  Transmission Date: 20210419
  Serious: No
  Sender: FDA-Public Use
  Company Number: US-ROCHE-2671245

PATIENT
  Age: 29 Year
  Sex: Male
  Weight: 90.7 kg

DRUGS (1)
  1. HEMLIBRA [Suspect]
     Active Substance: EMICIZUMAB-KXWH
     Indication: HAEMOPHILIA
     Route: 058
     Dates: start: 20190926

REACTIONS (3)
  - Contusion [Unknown]
  - Product administration error [Unknown]
  - Chest pain [Unknown]

NARRATIVE: CASE EVENT DATE: 20200825
